FAERS Safety Report 16017582 (Version 2)
Quarter: 2019Q2

REPORT INFORMATION
  Report Type: Spontaneous
  Country: BE (occurrence: BE)
  Receive Date: 20190228
  Receipt Date: 20190410
  Transmission Date: 20190711
  Serious: Yes (Other)
  Sender: FDA-Public Use
  Company Number: PHHY2019BE045357

PATIENT
  Age: 85 Year
  Sex: Male

DRUGS (3)
  1. REVOLADE [Suspect]
     Active Substance: ELTROMBOPAG
     Indication: PRODUCT USED FOR UNKNOWN INDICATION
     Dosage: 50 MG, QD
     Route: 065
  2. REVOLADE [Suspect]
     Active Substance: ELTROMBOPAG
     Dosage: UNK (25 MG ONE DAY AND 50 MG THE OTHER DAY)
     Route: 065
  3. REVOLADE [Suspect]
     Active Substance: ELTROMBOPAG
     Dosage: 25 MG, QD
     Route: 065

REACTIONS (5)
  - Platelet count decreased [Recovered/Resolved]
  - Blindness [Unknown]
  - Vascular fragility [Unknown]
  - Haemorrhage [Unknown]
  - Thrombosis [Unknown]
